FAERS Safety Report 4815359-0 (Version None)
Quarter: 2005Q4

REPORT INFORMATION
  Report Type: 
  Country: None (occurrence: None)
  Receive Date: 20051027
  Receipt Date: 20051013
  Transmission Date: 20060501
  Serious: No
  Sender: FDA-Public Use
  Company Number: 2005-00355

PATIENT
  Age: 74 Year
  Sex: Male

DRUGS (6)
  1. VELCADE [Suspect]
     Indication: MULTIPLE MYELOMA
     Dosage: 1.30 MG/M2, IV BOLUS; 1.00 MG/M2, INTRAVENOUS
     Route: 040
     Dates: start: 20050111, end: 20050121
  2. VELCADE [Suspect]
     Indication: MULTIPLE MYELOMA
     Dosage: 1.30 MG/M2, IV BOLUS; 1.00 MG/M2, INTRAVENOUS
     Route: 040
     Dates: start: 20050101, end: 20050614
  3. MULTIVITAMINS (ERGOCALCIFEROL, ASCORBIC ACID, PANTHENOL, NICOTINAMIDE, [Concomitant]
  4. PHOSLO [Concomitant]
  5. AMBIEN [Concomitant]
  6. COMPAZINE [Concomitant]

REACTIONS (6)
  - DIARRHOEA [None]
  - ERYTHEMA [None]
  - EXCORIATION [None]
  - PRURITUS [None]
  - RASH GENERALISED [None]
  - RASH MACULO-PAPULAR [None]
